FAERS Safety Report 4388318-2 (Version None)
Quarter: 2004Q2

REPORT INFORMATION
  Report Type: 
  Country: None (occurrence: None)
  Receive Date: 20040625
  Receipt Date: 20040621
  Transmission Date: 20050107
  Serious: No
  Sender: FDA-Public Use
  Company Number: A01200402326

PATIENT
  Age: 75 Year
  Sex: Female

DRUGS (6)
  1. PLAVIX [Suspect]
     Indication: CARDIOVASCULAR DISORDER
     Dosage: 75 MG QD
     Route: 048
     Dates: start: 20010101, end: 20040517
  2. PLAVIX [Suspect]
     Indication: PROPHYLAXIS
     Dosage: 75 MG QD
     Route: 048
     Dates: start: 20010101, end: 20040517
  3. GLYBURIDE [Concomitant]
  4. DIOSMINE (DIOSMIN) [Concomitant]
  5. COKENZEN [Concomitant]
  6. METFORMINE (METFORMIN) [Concomitant]

REACTIONS (1)
  - PEMPHIGOID [None]
